FAERS Safety Report 17287886 (Version 1)
Quarter: 2020Q1

REPORT INFORMATION
  Report Type: Spontaneous
  Country: JP (occurrence: JP)
  Receive Date: 20200120
  Receipt Date: 20200120
  Transmission Date: 20200409
  Serious: Yes (Other)
  Sender: FDA-Public Use
  Company Number: JP-009507513-1912JPN002231J

PATIENT
  Age: 92 Year
  Sex: Female

DRUGS (15)
  1. MIYA-BM [Concomitant]
     Active Substance: CLOSTRIDIUM BUTYRICUM SPORES STRAIN M-55
     Dosage: 2 DOSAGE FORM, TID
     Route: 048
     Dates: start: 20191105
  2. TSUMURA GOREISAN EXTRACT GRANULES FOR ETHICAL USE [Concomitant]
     Dosage: 5 GRAM, BID
     Route: 065
     Dates: start: 20150617
  3. WHITE PETROLATUM [Concomitant]
     Active Substance: PETROLATUM
     Dosage: 50 GRAM, QD
     Route: 065
     Dates: start: 20191203
  4. MEMARY [Concomitant]
     Active Substance: MEMANTINE HYDROCHLORIDE
     Dosage: 10 MILLIGRAM, QD
     Route: 048
     Dates: start: 20141217
  5. ANTEBATE:OINTMENT [Concomitant]
     Dosage: 50 GRAM, QD
     Route: 065
     Dates: start: 20191203
  6. REBAMIPIDE OD [Concomitant]
     Active Substance: REBAMIPIDE
     Dosage: 100 MILLIGRAM, BID
     Route: 048
     Dates: start: 20190806
  7. LIXIANA [Concomitant]
     Active Substance: EDOXABAN TOSYLATE
     Dosage: 30 MILLIGRAM, QD
     Route: 048
     Dates: start: 20190718
  8. ZINC OXIDE SIMPLE OINTMENT [Concomitant]
     Active Substance: ZINC OXIDE
     Dosage: 100 GRAM, QD
     Route: 065
     Dates: start: 20191105
  9. EPADEL [Concomitant]
     Active Substance: ICOSAPENT
     Dosage: 300 MILLIGRAM, BID
     Route: 048
     Dates: start: 20190415
  10. RINDERON V [Concomitant]
     Active Substance: BETAMETHASONE VALERATE
     Dosage: 100 GRAM, QD
     Route: 048
     Dates: start: 20191105
  11. DESALEX TABLETS 5MG [Suspect]
     Active Substance: DESLORATADINE
     Indication: ECZEMA
     Dosage: 5 MILLIGRAM, QD
     Route: 048
     Dates: start: 20191203, end: 20191209
  12. ADALAT CC [Concomitant]
     Active Substance: NIFEDIPINE
     Dosage: 10 MILLIGRAM, QD
     Route: 048
     Dates: start: 20191107
  13. ANTEBATE:OINTMENT [Concomitant]
     Dosage: 25 GRAM, QD
     Route: 065
     Dates: start: 20191105
  14. LEVOFLOXACIN. [Concomitant]
     Active Substance: LEVOFLOXACIN
     Dosage: 500 MILLIGRAM, QD
     Route: 048
     Dates: start: 20190806
  15. EXELON [Concomitant]
     Active Substance: RIVASTIGMINE TARTRATE
     Dosage: 9 MILLIGRAM, QD
     Route: 065
     Dates: start: 20160425

REACTIONS (2)
  - Erythema multiforme [Recovered/Resolved]
  - Pyrexia [Recovered/Resolved]

NARRATIVE: CASE EVENT DATE: 20191207
